FAERS Safety Report 6172872-4 (Version None)
Quarter: 2009Q2

REPORT INFORMATION
  Report Type: 
  Country: None (occurrence: None)
  Receive Date: 20090430
  Receipt Date: 20090421
  Transmission Date: 20091009
  Serious: Yes (Other)
  Sender: FDA-Public Use
  Company Number: US-ROCHE-626353

PATIENT
  Sex: Female
  Weight: 81.6 kg

DRUGS (11)
  1. CAPECITABINE [Suspect]
     Indication: COLORECTAL CANCER
     Route: 048
     Dates: start: 20090227
  2. AMARYL [Concomitant]
  3. CARTIA XT [Concomitant]
  4. DARVOCET [Concomitant]
  5. DEPRAL [Concomitant]
     Dosage: DRUG:DEPRAL CALCIUM
  6. FOSAMAX [Concomitant]
  7. FOSAMAX [Concomitant]
  8. LEVOTHYROXINE SODIUM [Concomitant]
  9. NEXIUM [Concomitant]
  10. XANAX [Concomitant]
  11. ACTOS [Concomitant]

REACTIONS (3)
  - DYSPNOEA [None]
  - FATIGUE [None]
  - PRECANCEROUS CELLS PRESENT [None]
